FAERS Safety Report 6279229-6 (Version None)
Quarter: 2009Q3

REPORT INFORMATION
  Report Type: 
  Country: None (occurrence: None)
  Receive Date: 20090723
  Receipt Date: 20080818
  Transmission Date: 20100115
  Serious: No
  Sender: FDA-Public Use
  Company Number: US-AMGEN-KDL302312

PATIENT
  Sex: Female
  Weight: 74.9 kg

DRUGS (3)
  1. PROCRIT [Suspect]
     Indication: ANAEMIA OF MALIGNANT DISEASE
     Dates: start: 20080815
  2. TAXOTERE [Concomitant]
  3. CYTOXAN [Concomitant]

REACTIONS (3)
  - ANXIETY [None]
  - OEDEMA PERIPHERAL [None]
  - PALPITATIONS [None]
